FAERS Safety Report 12739541 (Version 1)
Quarter: 2016Q3

REPORT INFORMATION
  Report Type: Spontaneous
  Country: CN (occurrence: CN)
  Receive Date: 20160913
  Receipt Date: 20160913
  Transmission Date: 20161109
  Serious: Yes (Other)
  Sender: FDA-Public Use
  Company Number: CN-ASTRAZENECA-2016SE96348

PATIENT
  Age: 10373 Day
  Sex: Female
  Weight: 65 kg

DRUGS (5)
  1. SODIUM VALPORATE SUSTAINED RELAEASE AGENT [Concomitant]
     Dosage: DEPAKIN 500-1000MG/D
  2. QUETIAPINE FUMARATE. [Suspect]
     Active Substance: QUETIAPINE FUMARATE
     Indication: AFFECTIVE DISORDER
     Dosage: 200-400MG/D
     Route: 048
     Dates: start: 20140313
  3. QUETIAPINE FUMARATE. [Suspect]
     Active Substance: QUETIAPINE FUMARATE
     Indication: AFFECTIVE DISORDER
     Route: 048
     Dates: start: 20151210, end: 20151227
  4. QUETIAPINE FUMARATE. [Suspect]
     Active Substance: QUETIAPINE FUMARATE
     Indication: AFFECTIVE DISORDER
     Route: 048
     Dates: start: 20140313
  5. QUETIAPINE FUMARATE. [Suspect]
     Active Substance: QUETIAPINE FUMARATE
     Indication: AFFECTIVE DISORDER
     Dosage: 200-300MG/D
     Route: 048

REACTIONS (3)
  - Imminent abortion [Not Recovered/Not Resolved]
  - Exposure during pregnancy [Unknown]
  - Weight increased [Unknown]

NARRATIVE: CASE EVENT DATE: 20151210
